FAERS Safety Report 21329066 (Version 3)
Quarter: 2022Q4

REPORT INFORMATION
  Report Type: Report from Study
  Country: US (occurrence: US)
  Receive Date: 20220913
  Receipt Date: 20221206
  Transmission Date: 20230112
  Serious: Yes (Other)
  Sender: FDA-Public Use
  Company Number: US-CELGENE-USA-20220208273

PATIENT
  Age: 62 Year
  Sex: Male
  Weight: 72.57 kg

DRUGS (16)
  1. REVLIMID [Suspect]
     Active Substance: LENALIDOMIDE
     Indication: Plasma cell myeloma
     Dosage: 25 MILLIGRAM
     Route: 048
     Dates: start: 202102
  2. REVLIMID [Suspect]
     Active Substance: LENALIDOMIDE
     Route: 048
     Dates: start: 202112
  3. REVLIMID [Suspect]
     Active Substance: LENALIDOMIDE
     Dosage: 15MG ONCE DAILY FOR 21 DAYS AND THEN 7 DAYS OFF
     Route: 048
     Dates: start: 202103
  4. REVLIMID [Suspect]
     Active Substance: LENALIDOMIDE
     Dosage: DAILY FOR 14 DAYS ON AND 7 DAYS OFF
     Route: 048
  5. REVLIMID [Suspect]
     Active Substance: LENALIDOMIDE
     Dosage: 15MG DAILY FOR 21 DAYS
     Route: 048
  6. REVLIMID [Suspect]
     Active Substance: LENALIDOMIDE
     Dosage: FOR 21 DAYS 7 DAYS BREAK
     Route: 048
  7. REVLIMID [Suspect]
     Active Substance: LENALIDOMIDE
     Dosage: 1 CAPSULE DAILY
     Route: 048
  8. CLINDAMYCIN [Concomitant]
     Active Substance: CLINDAMYCIN
     Indication: Product used for unknown indication
     Route: 065
  9. ALEVE [Concomitant]
     Active Substance: NAPROXEN SODIUM
     Indication: Product used for unknown indication
     Route: 065
  10. DARZALEX [Concomitant]
     Active Substance: DARATUMUMAB
     Indication: Product used for unknown indication
     Route: 065
  11. VITAMINS [Concomitant]
     Active Substance: VITAMINS
     Indication: Product used for unknown indication
     Route: 065
  12. ALBUTEROL SULFATE [Concomitant]
     Active Substance: ALBUTEROL SULFATE
     Indication: Product used for unknown indication
     Route: 065
  13. LEVALBUTEROL [Concomitant]
     Active Substance: LEVALBUTEROL
     Indication: Product used for unknown indication
     Route: 065
  14. ANORO ELLIPTA [Concomitant]
     Active Substance: UMECLIDINIUM BROMIDE\VILANTEROL TRIFENATATE
     Indication: Product used for unknown indication
     Route: 065
  15. OXYCODONE [Concomitant]
     Active Substance: OXYCODONE
     Indication: Product used for unknown indication
     Route: 065
  16. SHINGRIX [Concomitant]
     Active Substance: RECOMBINANT VARICELLA ZOSTER VIRUS (VZV) GLYCOPROTEIN E
     Indication: Product used for unknown indication
     Route: 065

REACTIONS (13)
  - Abdominal pain upper [Unknown]
  - Diarrhoea [Unknown]
  - Somnolence [Unknown]
  - Neuropathy peripheral [Not Recovered/Not Resolved]
  - Product dose omission issue [Unknown]
  - Tooth injury [Unknown]
  - Peripheral swelling [Unknown]
  - Pain in extremity [Unknown]
  - Off label use [Unknown]
  - Pruritus [Unknown]
  - Solar lentigo [Unknown]
  - Abdominal discomfort [Unknown]
  - Sluggishness [Unknown]
